FAERS Safety Report 23570193 (Version 3)
Quarter: 2024Q3

REPORT INFORMATION
  Report Type: Spontaneous
  Country: US (occurrence: US)
  Receive Date: 20240227
  Receipt Date: 20240705
  Transmission Date: 20241017
  Serious: Yes (Other)
  Sender: BAYER
  Company Number: US-BAYER-2024A025528

PATIENT
  Age: 26 Year
  Sex: Female
  Weight: 106.12 kg

DRUGS (7)
  1. MIRENA [Suspect]
     Active Substance: LEVONORGESTREL
     Indication: Contraception
     Dosage: 20?G/DAY
     Route: 015
     Dates: start: 20230407, end: 20240416
  2. MIRENA [Suspect]
     Active Substance: LEVONORGESTREL
     Indication: Heavy menstrual bleeding
  3. WELLBUTRIN [Concomitant]
     Active Substance: BUPROPION HYDROCHLORIDE
     Dosage: UNK
     Dates: start: 202306
  4. MELATONIN [Concomitant]
     Active Substance: MELATONIN
  5. SERTRALINE [Concomitant]
     Active Substance: SERTRALINE HYDROCHLORIDE
  6. BUPROPION [Concomitant]
     Active Substance: BUPROPION
  7. ETONOGESTREL [Concomitant]
     Active Substance: ETONOGESTREL

REACTIONS (13)
  - Device breakage [Recovered/Resolved]
  - Complication of device removal [None]
  - Genital haemorrhage [Recovered/Resolved]
  - Weight increased [None]
  - Abdominal pain lower [None]
  - Depression [None]
  - Pelvic pain [None]
  - Asthenia [None]
  - Fatigue [None]
  - Abdominal distension [None]
  - Anger [None]
  - Hirsutism [None]
  - Muscle spasms [None]

NARRATIVE: CASE EVENT DATE: 20240101
